FAERS Safety Report 9108320 (Version 1)
Quarter: 2013Q1

REPORT INFORMATION
  Report Type: Spontaneous
  Country: AR (occurrence: AR)
  Receive Date: 20130222
  Receipt Date: 20130222
  Transmission Date: 20140127
  Serious: Yes (Hospitalization)
  Sender: FDA-Public Use
  Company Number: PHHY2013AR017652

PATIENT
  Sex: Female

DRUGS (3)
  1. DIOVAN D [Suspect]
     Indication: HYPERTENSION
     Dosage: 1 DF, DAILY
     Route: 048
     Dates: end: 20130121
  2. MEDOCOR [Concomitant]
     Indication: HYPERTENSION
     Dosage: UNK UKN, UNK
     Dates: end: 20130218
  3. FUROSEMIDE [Concomitant]
     Indication: HYPERTENSION
     Dosage: UNK UKN, UNK
     Dates: end: 20130218

REACTIONS (4)
  - Heart rate decreased [Recovering/Resolving]
  - Dehydration [Unknown]
  - Hallucination [Unknown]
  - Decreased appetite [Unknown]
